FAERS Safety Report 8915426 (Version 1)
Quarter: 2012Q4

REPORT INFORMATION
  Report Type: 
  Country: US (occurrence: US)
  Receive Date: 20121116
  Receipt Date: 20121116
  Transmission Date: 20130627
  Serious: No
  Sender: FDA-Public Use
  Company Number: US-009507513-1210USA011744

PATIENT
  Age: 2 Year
  Sex: Male

DRUGS (2)
  1. CLARITIN ORAL SOLUTION [Suspect]
     Indication: HYPERSENSITIVITY
     Dosage: UNK, qd
     Route: 048
  2. CLARITIN ORAL SOLUTION [Suspect]
     Dosage: 7.5 mg, Once
     Route: 048

REACTIONS (2)
  - Rash [Recovering/Resolving]
  - Overdose [Unknown]
